FAERS Safety Report 7350149-9 (Version None)
Quarter: 2011Q1

REPORT INFORMATION
  Report Type: 
  Country: None (occurrence: None)
  Receive Date: 20110314
  Receipt Date: 20110304
  Transmission Date: 20110831
  Serious: Yes (Other)
  Sender: FDA-Public Use
  Company Number: B0683728A

PATIENT
  Age: 47 Year
  Sex: Male
  Weight: 68 kg

DRUGS (3)
  1. KIVEXA [Suspect]
     Dosage: 1IUAX PER DAY
     Dates: start: 20060224
  2. RITONAVIR [Suspect]
     Dates: start: 20060101
  3. REYATAZ [Suspect]
     Dates: start: 20060101

REACTIONS (1)
  - JAUNDICE [None]
